FAERS Safety Report 10257944 (Version 1)
Quarter: 2014Q2

REPORT INFORMATION
  Report Type: Spontaneous
  Country: US (occurrence: None)
  Receive Date: 20140623
  Receipt Date: 20140623
  Transmission Date: 20141212
  Serious: No
  Sender: FDA-Public Use
  Company Number: None

PATIENT
  Age: 61 Year
  Sex: Male
  Weight: 96.2 kg

DRUGS (1)
  1. ARIPIPRAZOLE [Suspect]
     Indication: DEPRESSION
     Dosage: 7.5 MG  EVERY DAY  PO
     Route: 048
     Dates: start: 20131105, end: 20140602

REACTIONS (2)
  - Muscle spasms [None]
  - Tremor [None]
